FAERS Safety Report 6234185-1 (Version None)
Quarter: 2009Q2

REPORT INFORMATION
  Report Type: 
  Country: None (occurrence: None)
  Receive Date: 20090618
  Receipt Date: 20090611
  Transmission Date: 20091009
  Serious: No
  Sender: FDA-Public Use
  Company Number: US-JNJFOC-20090400175

PATIENT
  Sex: Female

DRUGS (14)
  1. FENTANYL TRANSDERMAL SYSTEM [Suspect]
     Route: 062
  2. FENTANYL TRANSDERMAL SYSTEM [Suspect]
     Route: 062
  3. FENTANYL TRANSDERMAL SYSTEM [Suspect]
     Route: 062
  4. FENTANYL TRANSDERMAL SYSTEM [Suspect]
     Indication: PAIN
     Route: 062
  5. UNSPECIFIED MEDICATIONS [Concomitant]
  6. CYMBALTA [Concomitant]
  7. NORTRIPTYLINE HCL [Concomitant]
  8. ZOCOR [Concomitant]
  9. METFORMIN HCL [Concomitant]
  10. LASIX [Concomitant]
  11. ASPIRIN [Concomitant]
  12. HYDROMORPH [Concomitant]
     Indication: PAIN
  13. SENNA S [Concomitant]
     Indication: CONSTIPATION
  14. BENAZEPRIL HYDROCHLORIDE [Concomitant]
     Indication: HYPERTENSION

REACTIONS (3)
  - INAPPROPRIATE SCHEDULE OF DRUG ADMINISTRATION [None]
  - SEDATION [None]
  - SOMNOLENCE [None]
